FAERS Safety Report 6168496-5 (Version None)
Quarter: 2009Q2

REPORT INFORMATION
  Report Type: 
  Country: None (occurrence: None)
  Receive Date: 20090427
  Receipt Date: 20090417
  Transmission Date: 20091009
  Serious: Yes (Hospitalization)
  Sender: FDA-Public Use
  Company Number: A0780392A

PATIENT
  Age: 70 Year
  Sex: Female

DRUGS (14)
  1. AVANDIA [Suspect]
     Indication: DIABETES MELLITUS
     Dosage: 8MG PER DAY
     Route: 048
     Dates: start: 20010501, end: 20070401
  2. METFORMIN HCL [Concomitant]
  3. CELEBREX [Concomitant]
  4. LIPITOR [Concomitant]
  5. TRICOR [Concomitant]
  6. ZETIA [Concomitant]
  7. ELAVIL [Concomitant]
  8. EVISTA [Concomitant]
  9. NEURONTIN [Concomitant]
  10. AVALIDE [Concomitant]
  11. COREG [Concomitant]
  12. PRILOSEC [Concomitant]
  13. NEXIUM [Concomitant]
  14. TRICOR [Concomitant]

REACTIONS (2)
  - CARDIAC DISORDER [None]
  - CARDIAC FAILURE CONGESTIVE [None]
